FAERS Safety Report 17111228 (Version 1)
Quarter: 2019Q4

REPORT INFORMATION
  Report Type: Spontaneous
  Country: US (occurrence: US)
  Receive Date: 20191111
  Receipt Date: 20191111
  Transmission Date: 20200122
  Serious: No
  Sender: FDA-Public Use
  Company Number: None

PATIENT
  Sex: Female

DRUGS (1)
  1. LUPRON DEPOT [Suspect]
     Active Substance: LEUPROLIDE ACETATE
     Indication: BREAST CANCER
     Route: 030
     Dates: start: 201910

REACTIONS (7)
  - Arthralgia [None]
  - Hot flush [None]
  - Bone pain [None]
  - Therapy cessation [None]
  - Pain [None]
  - Haematochezia [None]
  - Fatigue [None]
